FAERS Safety Report 9201214 (Version 1)
Quarter: 2013Q1

REPORT INFORMATION
  Report Type: Spontaneous
  Country: US (occurrence: None)
  Receive Date: 20130327
  Receipt Date: 20130327
  Transmission Date: 20140127
  Serious: Yes (Other)
  Sender: FDA-Public Use
  Company Number: IPC201303-000095

PATIENT
  Age: 53 Year
  Sex: Female

DRUGS (7)
  1. HYDROXYCHLOROQUINE SULFATE [Suspect]
  2. METHOTREXATE [Suspect]
  3. MINOCYCLINE [Suspect]
  4. TACROLIMUS [Suspect]
     Route: 061
  5. IMIQUIMOD [Suspect]
     Route: 061
  6. PREDNISONE [Suspect]
     Dosage: 15 MG/DAY
     Route: 048
  7. MYCOPHENOLATE MOFETIL [Suspect]
     Dates: start: 200312

REACTIONS (4)
  - Sarcoidosis [None]
  - Hypertension [None]
  - Diabetes mellitus [None]
  - Osteonecrosis [None]
